FAERS Safety Report 10162589 (Version 1)
Quarter: 2014Q2

REPORT INFORMATION
  Report Type: Spontaneous
  Country: IT (occurrence: IT)
  Receive Date: 20140509
  Receipt Date: 20140509
  Transmission Date: 20141212
  Serious: Yes (Death)
  Sender: FDA-Public Use
  Company Number: PHHY2014IT055120

PATIENT
  Age: 66 Year
  Sex: Female

DRUGS (3)
  1. AFINITOR [Suspect]
     Indication: BREAST CANCER
     Dosage: 10 MG, DAILY
     Route: 048
     Dates: start: 20140306, end: 20140411
  2. XGEVA [Suspect]
     Indication: METASTASES TO BONE
     Dosage: 120 MG, MONTHLY
     Route: 030
     Dates: start: 20140306, end: 20140306
  3. EXEMESTANE [Concomitant]
     Indication: BREAST CANCER
     Dosage: 25 MG, UNK
     Route: 048
     Dates: start: 20140306, end: 20140411

REACTIONS (4)
  - Death [Fatal]
  - Myocarditis [Fatal]
  - Dyspnoea [Fatal]
  - Troponin I increased [Fatal]
